FAERS Safety Report 12184138 (Version 2)
Quarter: 2020Q2

REPORT INFORMATION
  Report Type: Spontaneous
  Country: US (occurrence: US)
  Receive Date: 20160316
  Receipt Date: 20200519
  Transmission Date: 20200713
  Serious: Yes (Death, Other)
  Sender: FDA-Public Use
  Company Number: US-ALEXION PHARMACEUTICALS INC-A201601647

PATIENT
  Age: 34 Year
  Sex: Male

DRUGS (5)
  1. PREDNISONE. [Concomitant]
     Active Substance: PREDNISONE
     Dosage: 7.5 MG, TOTAL DAILY DOSE
     Route: 065
  2. SOLIRIS [Suspect]
     Active Substance: ECULIZUMAB
     Indication: ATYPICAL HAEMOLYTIC URAEMIC SYNDROME
     Dosage: UNK
     Route: 042
  3. PREDNISONE. [Concomitant]
     Active Substance: PREDNISONE
     Dosage: 10 MG, TOTAL DAILY DOSE
     Route: 065
  4. PREDNISONE. [Concomitant]
     Active Substance: PREDNISONE
     Indication: IMMUNOSUPPRESSION
     Dosage: 35 MG, TOTAL DAILY DOSE
     Route: 065
  5. PREDNISONE. [Concomitant]
     Active Substance: PREDNISONE
     Dosage: 20 MG, TOTAL DAILY DOSE
     Route: 065

REACTIONS (2)
  - Pneumonia pseudomonal [Fatal]
  - Complications of transplant surgery [Fatal]
